FAERS Safety Report 16732445 (Version 1)
Quarter: 2019Q3

REPORT INFORMATION
  Report Type: Spontaneous
  Country: US (occurrence: US)
  Receive Date: 20190822
  Receipt Date: 20190822
  Transmission Date: 20191005
  Serious: No
  Sender: FDA-Public Use
  Company Number: US-JNJFOC-20190820973

PATIENT
  Sex: Female
  Weight: 65.83 kg

DRUGS (2)
  1. TYLENOL 8HR [Suspect]
     Active Substance: ACETAMINOPHEN
     Indication: PAIN
     Dosage: 2 TABLES IN THE MORNING AND 2 AT NIGHT TWICE DAILY
     Route: 048
  2. TYLENOL 8 HR ARTHRITIS PAIN [Suspect]
     Active Substance: ACETAMINOPHEN
     Indication: PAIN
     Dosage: 2 TABLES IN THE MORNING AND 2 AT NIGHT TWICE DAILY
     Route: 048

REACTIONS (1)
  - Inappropriate schedule of product administration [Unknown]
